FAERS Safety Report 9687155 (Version 2)
Quarter: 2013Q4

REPORT INFORMATION
  Report Type: Spontaneous
  Country: US (occurrence: US)
  Receive Date: 20131113
  Receipt Date: 20131120
  Transmission Date: 20140711
  Serious: No
  Sender: FDA-Public Use
  Company Number: US-GILEAD-2013-0087480

PATIENT
  Age: 61 Year
  Sex: Female

DRUGS (3)
  1. LETAIRIS [Suspect]
     Indication: PULMONARY HYPERTENSION
     Dosage: 10 MG, QD
     Dates: start: 20130406
  2. LETAIRIS [Suspect]
     Indication: SYSTEMIC SCLEROSIS
  3. METHOTREXATE [Concomitant]
     Indication: ARTHRITIS

REACTIONS (2)
  - Chronic obstructive pulmonary disease [Unknown]
  - Weight increased [Unknown]
